FAERS Safety Report 10103734 (Version 2)
Quarter: 2014Q2

REPORT INFORMATION
  Report Type: Spontaneous
  Country: US (occurrence: US)
  Receive Date: 20140424
  Receipt Date: 20140427
  Transmission Date: 20141212
  Serious: No
  Sender: FDA-Public Use
  Company Number: US-009507513-1404USA007591

PATIENT
  Age: 23 Year
  Sex: Female
  Weight: 71.2 kg

DRUGS (1)
  1. IMPLANON [Suspect]
     Indication: CONTRACEPTION
     Dosage: 1 DF, UNK
     Route: 059
     Dates: start: 2009

REACTIONS (4)
  - Haemorrhage [Unknown]
  - Device deployment issue [Unknown]
  - Incorrect drug administration duration [Unknown]
  - Medical device complication [Unknown]
